FAERS Safety Report 23191595 (Version 3)
Quarter: 2025Q3

REPORT INFORMATION
  Report Type: Spontaneous
  Country: EU (occurrence: EU)
  Receive Date: 20231116
  Receipt Date: 20250707
  Transmission Date: 20251021
  Serious: Yes (Hospitalization, Other)
  Sender: SANDOZ
  Company Number: EU-RECORDATI-2023003418

PATIENT
  Age: 49 Year
  Sex: Female

DRUGS (5)
  1. ELIGARD [Suspect]
     Active Substance: LEUPROLIDE ACETATE
     Indication: Leiomyoma
     Route: 065
  2. ELIGARD [Suspect]
     Active Substance: LEUPROLIDE ACETATE
     Indication: Heavy menstrual bleeding
  3. RIVAROXABAN [Suspect]
     Active Substance: RIVAROXABAN
     Dosage: 20 MILLIGRAM, ONCE A DAY
     Route: 065
  4. RIVAROXABAN [Suspect]
     Active Substance: RIVAROXABAN
     Indication: Deep vein thrombosis
     Dosage: 15 MILLIGRAM, TWO TIMES A DAY
     Route: 065
  5. NADROPARIN [Concomitant]
     Active Substance: NADROPARIN
     Indication: Deep vein thrombosis
     Route: 065

REACTIONS (6)
  - Haemorrhage [Recovering/Resolving]
  - Blood loss anaemia [Recovered/Resolved]
  - Heavy menstrual bleeding [Recovering/Resolving]
  - Anaemia [Unknown]
  - Off label use [Unknown]
  - Drug ineffective [Unknown]
